FAERS Safety Report 5803636-6 (Version None)
Quarter: 2008Q3

REPORT INFORMATION
  Report Type: 
  Country: None (occurrence: None)
  Receive Date: 20080703
  Receipt Date: 20080625
  Transmission Date: 20090109
  Serious: Yes (Other)
  Sender: FDA-Public Use
  Company Number: B0527614A

PATIENT
  Age: 3 Year
  Sex: Female

DRUGS (4)
  1. MELPHALAN (FORMULATION UNKNOWN) (GENERIC) (MELPHALAN) [Suspect]
     Indication: LUNG NEOPLASM
     Dosage: 210 MG/M2 / CYCLIC
  2. BUSULPHAN (FORMULATION UNKNOWN) (GENERIC) (BUSULFAN) [Suspect]
     Indication: LUNG NEOPLASM
     Dosage: 20 MG/KG / CYCLIC
  3. THIOTEPA [Suspect]
     Indication: LUNG NEOPLASM
     Dosage: 800 MG/M2 / CYCLIC
  4. IFOSFAMIDE [Suspect]
     Indication: LUNG NEOPLASM
     Dosage: 12.5 G/M2 CYCLIC

REACTIONS (2)
  - METASTASES TO LYMPH NODES [None]
  - THYROID CANCER [None]
